FAERS Safety Report 21565974 (Version 1)
Quarter: 2022Q4

REPORT INFORMATION
  Report Type: Report from Study
  Country: FR (occurrence: FR)
  Receive Date: 20221108
  Receipt Date: 20221108
  Transmission Date: 20230113
  Serious: Yes (Death)
  Sender: FDA-Public Use
  Company Number: FR-MYLANLABS-2022M1122328

PATIENT

DRUGS (8)
  1. CISPLATIN [Suspect]
     Active Substance: CISPLATIN
     Indication: Non-small cell lung cancer stage III
     Dosage: 75 MILLIGRAM/SQ. METER, DOSAGE: ON DAY 1 OF A 21-DAY CYCLE
     Route: 065
  2. CISPLATIN [Suspect]
     Active Substance: CISPLATIN
     Indication: Non-small cell lung cancer
  3. PEMETREXED [Suspect]
     Active Substance: PEMETREXED
     Indication: Non-small cell lung cancer stage III
     Dosage: 500 MILLIGRAM/SQ. METER, DOSAGE: ON DAY 1 OF A 21-DAY CYCLE
     Route: 065
  4. PEMETREXED [Suspect]
     Active Substance: PEMETREXED
     Indication: Non-small cell lung cancer
  5. CETUXIMAB [Suspect]
     Active Substance: CETUXIMAB
     Indication: Non-small cell lung cancer stage III
     Dosage: 400 MILLIGRAM/SQ. METER, DOSAGE: LOADING DOSE OF CETUXIMAB 400MG/M2 N DAY 1 OF FIRST WEEK...
     Route: 065
  6. CETUXIMAB [Suspect]
     Active Substance: CETUXIMAB
     Indication: Non-small cell lung cancer
     Dosage: 250 MILLIGRAM/SQ. METER, QW (DOSAGE: LOADING DOSE OF CETUXIMAB 400MG/M2 ON DAY 1 OF FIRST WEEK..
     Route: 065
  7. FOLIC ACID [Concomitant]
     Active Substance: FOLIC ACID
     Indication: Vitamin supplementation
     Dosage: 400 MICROGRAM, QD
     Route: 048
  8. VITAMIN B12 [Concomitant]
     Active Substance: CYANOCOBALAMIN
     Indication: Vitamin supplementation
     Dosage: 1 MILLIGRAM, QD
     Route: 030

REACTIONS (2)
  - Subdural haematoma [Fatal]
  - Thrombocytopenia [Fatal]
